FAERS Safety Report 7599659-X (Version None)
Quarter: 2011Q3

REPORT INFORMATION
  Report Type: 
  Country: None (occurrence: None)
  Receive Date: 20110711
  Receipt Date: 20110628
  Transmission Date: 20111222
  Serious: Yes (Death, Other)
  Sender: FDA-Public Use
  Company Number: GB-ELI_LILLY_AND_COMPANY-GB201106008808

PATIENT
  Age: 38 Year
  Sex: Male

DRUGS (7)
  1. METHADONE HCL [Concomitant]
  2. OMEPRAZOLE [Concomitant]
  3. DIAZEPAM [Concomitant]
  4. MIRTAZAPINE [Concomitant]
  5. ZYPREXA [Suspect]
  6. CHLORDIAZEPOXIDE [Concomitant]
  7. DIHYDROCODEINE BITARTRATE INJ [Concomitant]

REACTIONS (2)
  - TOXICITY TO VARIOUS AGENTS [None]
  - INFLUENZA LIKE ILLNESS [None]
